FAERS Safety Report 10833844 (Version 1)
Quarter: 2015Q1

REPORT INFORMATION
  Report Type: Spontaneous
  Country: US (occurrence: US)
  Receive Date: 20150219
  Receipt Date: 20150219
  Transmission Date: 20150721
  Serious: Yes (Other)
  Sender: FDA-Public Use
  Company Number: US-ASTELLAS-2015US004710

PATIENT
  Sex: Male

DRUGS (1)
  1. XTANDI [Suspect]
     Active Substance: ENZALUTAMIDE
     Indication: PROSTATE CANCER METASTATIC
     Dosage: 1XTANDI PILL EVERY 4 HOURS, 8A TO 8P
     Route: 065
     Dates: start: 201409

REACTIONS (2)
  - Inappropriate schedule of drug administration [Unknown]
  - Lymphadenopathy [Unknown]
